FAERS Safety Report 9165499 (Version 1)
Quarter: 2013Q1

REPORT INFORMATION
  Report Type: Spontaneous
  Country: GB (occurrence: None)
  Receive Date: 20130301
  Receipt Date: 20130301
  Transmission Date: 20140127
  Serious: Yes (Hospitalization)
  Sender: FDA-Public Use
  Company Number: SYM-2013-00940

PATIENT
  Age: 65 Year
  Sex: Male

DRUGS (1)
  1. TIMOPTOL-LA(TIMOLOL MALEATE)(0.25%W/V 0.25%W/V GEL-FORMING EYE DROPS SOLUTION)(TIMOLOL MALEATE)\ [Suspect]
     Indication: PRODUCT USED FOR UNKNOWN INDICATION
     Route: 047
     Dates: start: 201208, end: 201211

REACTIONS (3)
  - Peyronie^s disease [None]
  - Product substitution issue [None]
  - Sexual dysfunction [None]
